FAERS Safety Report 8983934 (Version 1)
Quarter: 2012Q4

REPORT INFORMATION
  Report Type: Spontaneous
  Country: US (occurrence: None)
  Receive Date: 20121218
  Receipt Date: 20121218
  Transmission Date: 20130627
  Serious: Yes (Other)
  Sender: FDA-Public Use
  Company Number: None

PATIENT
  Sex: Male
  Weight: 79.9 kg

DRUGS (12)
  1. ISOVUE 370 [Suspect]
     Dosage: 210 ml once IV bolus
     Route: 040
     Dates: start: 20121120, end: 20121120
  2. ASPIRIN [Concomitant]
  3. BIVALIRUDIN [Concomitant]
  4. CLOPIDOGREL [Concomitant]
  5. DIAZEPAM [Concomitant]
  6. DIPHENHYDRAMINE [Concomitant]
  7. INSULIN LISPRO [Concomitant]
  8. IOPADIMOL [Concomitant]
  9. LISINOPRIL [Concomitant]
  10. METOPROLOL [Concomitant]
  11. NITROGLYCERIN [Concomitant]
  12. OMEPRAZOLE [Concomitant]

REACTIONS (4)
  - Angina unstable [None]
  - Hypotension [None]
  - Feeling hot [None]
  - Urticaria [None]
